FAERS Safety Report 4579281-X (Version None)
Quarter: 2005Q1

REPORT INFORMATION
  Report Type: 
  Country: None (occurrence: None)
  Receive Date: 20050209
  Receipt Date: 20050127
  Transmission Date: 20050727
  Serious: Yes (Disabling)
  Sender: FDA-Public Use
  Company Number: 2005AC00210

PATIENT
  Age: 63 Year
  Sex: Female
  Weight: 75 kg

DRUGS (5)
  1. ARIMIDEX [Suspect]
     Indication: BREAST CANCER
     Dates: start: 20030226, end: 20050117
  2. ELTHYRONE [Concomitant]
  3. HYPERLIPEN [Concomitant]
  4. LUDIOMIL [Concomitant]
  5. LEXOTAN [Concomitant]

REACTIONS (2)
  - DRY EYE [None]
  - VISUAL BRIGHTNESS [None]
